FAERS Safety Report 7911223-9 (Version None)
Quarter: 2011Q4

REPORT INFORMATION
  Report Type: 
  Country: None (occurrence: None)
  Receive Date: 20111114
  Receipt Date: 20111106
  Transmission Date: 20120403
  Serious: Yes (Other)
  Sender: FDA-Public Use
  Company Number: DE-JNJFOC-20100601932

PATIENT
  Age: 44 Year
  Sex: Female

DRUGS (1)
  1. RISPERDAL CONSTA [Suspect]
     Indication: ILL-DEFINED DISORDER
     Route: 030

REACTIONS (3)
  - INJURY ASSOCIATED WITH DEVICE [None]
  - DEVICE MALFUNCTION [None]
  - EXPOSURE TO CONTAMINATED DEVICE [None]
